FAERS Safety Report 5482331-X (Version None)
Quarter: 2007Q4

REPORT INFORMATION
  Report Type: 
  Country: None (occurrence: None)
  Receive Date: 20071011
  Receipt Date: 20071009
  Transmission Date: 20080405
  Serious: Yes (Hospitalization)
  Sender: FDA-Public Use
  Company Number: FR-AVENTIS-200713217FR

PATIENT
  Age: 72 Year
  Sex: Male

DRUGS (6)
  1. LASIX [Suspect]
     Route: 048
  2. ALDACTONE [Suspect]
     Route: 048
     Dates: end: 20061017
  3. ATACAND [Suspect]
     Route: 048
  4. TAHOR [Concomitant]
     Route: 048
  5. METFORMIN HCL [Concomitant]
     Route: 048
  6. AMLOR [Concomitant]
     Route: 048

REACTIONS (3)
  - BUNDLE BRANCH BLOCK [None]
  - HYPERKALAEMIA [None]
  - MALAISE [None]
